FAERS Safety Report 4355048-2 (Version None)
Quarter: 2004Q2

REPORT INFORMATION
  Report Type: 
  Country: None (occurrence: None)
  Receive Date: 20040504
  Receipt Date: 20040426
  Transmission Date: 20050107
  Serious: Yes (Other)
  Sender: FDA-Public Use
  Company Number: 200412065BCC

PATIENT
  Age: 79 Year
  Sex: Female
  Weight: 61.2356 kg

DRUGS (1)
  1. PHILLIPS MILK OF MAGNESIA LIQUID [Suspect]
     Indication: CONSTIPATION
     Dosage: 30 ML, QOD, ORAL
     Route: 048

REACTIONS (4)
  - BLOOD PRESSURE INCREASED [None]
  - DIZZINESS [None]
  - LIMB INJURY [None]
  - LOSS OF CONSCIOUSNESS [None]
